FAERS Safety Report 23788242 (Version 2)
Quarter: 2024Q2

REPORT INFORMATION
  Report Type: Spontaneous
  Country: AU (occurrence: AU)
  Receive Date: 20240426
  Receipt Date: 20240502
  Transmission Date: 20240716
  Serious: Yes (Death, Disabling)
  Sender: FDA-Public Use
  Company Number: AU-Eisai-EC-2024-164354

PATIENT
  Age: 59 Year
  Sex: Female

DRUGS (3)
  1. LENVIMA [Suspect]
     Active Substance: LENVATINIB
     Indication: Endometrial cancer
     Route: 048
  2. LENVIMA [Suspect]
     Active Substance: LENVATINIB
     Route: 048
  3. PEMBROLIZUMAB [Concomitant]
     Active Substance: PEMBROLIZUMAB
     Indication: Endometrial cancer
     Dosage: DOSE AND FREQUENCY UNKNOWN
     Route: 041

REACTIONS (2)
  - Malignant neoplasm progression [Fatal]
  - Rash [Unknown]
